FAERS Safety Report 13787680 (Version 1)
Quarter: 2017Q3

REPORT INFORMATION
  Report Type: Spontaneous
  Country: US (occurrence: US)
  Receive Date: 20170725
  Receipt Date: 20170725
  Transmission Date: 20171127
  Serious: No
  Sender: FDA-Public Use
  Company Number: US-JNJFOC-20170110039

PATIENT
  Age: 16 Year
  Sex: Female

DRUGS (8)
  1. TYLENOL [Suspect]
     Active Substance: ACETAMINOPHEN
     Indication: PAIN
     Dosage: EVERY 3 TO 4 HOURS, AS NEEDED
     Route: 065
     Dates: start: 201608
  2. MOTRIN [Suspect]
     Active Substance: IBUPROFEN
     Indication: PYREXIA
     Dosage: EVERY 3 TO 4 HOURS, AS NEEDED
     Route: 065
     Dates: start: 201608
  3. MOTRIN [Suspect]
     Active Substance: IBUPROFEN
     Indication: HEADACHE
     Dosage: EVERY 3 TO 4 HOURS, AS NEEDED
     Route: 065
     Dates: start: 201608
  4. MOTRIN [Suspect]
     Active Substance: IBUPROFEN
     Indication: TOOTHACHE
     Dosage: EVERY 3 TO 4 HOURS, AS NEEDED
     Route: 065
     Dates: start: 201608
  5. TYLENOL [Suspect]
     Active Substance: ACETAMINOPHEN
     Indication: TOOTHACHE
     Dosage: EVERY 3 TO 4 HOURS, AS NEEDED
     Route: 065
     Dates: start: 201608
  6. MOTRIN [Suspect]
     Active Substance: IBUPROFEN
     Indication: PAIN
     Dosage: EVERY 3 TO 4 HOURS, AS NEEDED
     Route: 065
     Dates: start: 201608
  7. TYLENOL [Suspect]
     Active Substance: ACETAMINOPHEN
     Indication: HEADACHE
     Dosage: EVERY 3 TO 4 HOURS, AS NEEDED
     Route: 065
     Dates: start: 201608
  8. TYLENOL [Suspect]
     Active Substance: ACETAMINOPHEN
     Indication: PYREXIA
     Dosage: EVERY 3 TO 4 HOURS, AS NEEDED
     Route: 065
     Dates: start: 201608

REACTIONS (1)
  - Drug ineffective [Unknown]

NARRATIVE: CASE EVENT DATE: 201608
